FAERS Safety Report 8302494-8 (Version None)
Quarter: 2012Q2

REPORT INFORMATION
  Report Type: 
  Country: None (occurrence: None)
  Receive Date: 20120404
  Receipt Date: 20120328
  Transmission Date: 20120825
  Serious: Yes (Other)
  Sender: FDA-Public Use
  Company Number: 2012031595

PATIENT
  Age: 80 Year
  Sex: Female

DRUGS (7)
  1. PRIVIGEN [Suspect]
     Indication: TEMPORAL ARTERITIS
     Dosage: 10 Q QD, 9 VIALS, INTRAVENOUS (NOT OTHERWISE SPECIFIED)
     Route: 042
     Dates: start: 20120109, end: 20120213
  2. AMLODIPINE BESYLATE [Concomitant]
  3. IKOREL (NICORANDIL) [Concomitant]
  4. CLOBETASOL PROPIONATE [Concomitant]
  5. DUPHALAC [Concomitant]
  6. PREDNISONE TAB [Concomitant]
  7. ASPIRIN [Concomitant]

REACTIONS (12)
  - SKIN ULCER [None]
  - OFF LABEL USE [None]
  - VIRAL TEST NEGATIVE [None]
  - HTLV-2 TEST POSITIVE [None]
  - HYPOAESTHESIA [None]
  - MOTOR DEVELOPMENTAL DELAY [None]
  - AREFLEXIA [None]
  - DERMATITIS [None]
  - IMMUNISATION [None]
  - HTLV-1 TEST POSITIVE [None]
  - FATIGUE [None]
  - MOTOR DYSFUNCTION [None]
